FAERS Safety Report 23352768 (Version 1)
Quarter: 2023Q4

REPORT INFORMATION
  Report Type: Spontaneous
  Country: IR (occurrence: IR)
  Receive Date: 20231230
  Receipt Date: 20231230
  Transmission Date: 20240109
  Serious: Yes (Hospitalization, Other)
  Sender: FDA-Public Use
  Company Number: IR-EPICPHARMA-IR-2023EPCLIT01862

PATIENT
  Age: 46 Year
  Sex: Male

DRUGS (2)
  1. AMIODARONE HYDROCHLORIDE [Suspect]
     Active Substance: AMIODARONE HYDROCHLORIDE
     Indication: Ventricular arrhythmia
     Route: 065
  2. AMIODARONE HYDROCHLORIDE [Suspect]
     Active Substance: AMIODARONE HYDROCHLORIDE
     Indication: Cardiac failure congestive

REACTIONS (4)
  - Demyelinating polyneuropathy [Unknown]
  - Pulmonary toxicity [Unknown]
  - Toxicity to various agents [Unknown]
  - Product use in unapproved indication [Unknown]
